FAERS Safety Report 6145216-1 (Version None)
Quarter: 2009Q2

REPORT INFORMATION
  Report Type: 
  Country: None (occurrence: None)
  Receive Date: 20090401
  Receipt Date: 20090323
  Transmission Date: 20091009
  Serious: Yes (Hospitalization)
  Sender: FDA-Public Use
  Company Number: GXKR2009DE02375

PATIENT
  Sex: Male

DRUGS (2)
  1. RAMIPRIL [Suspect]
     Indication: HYPERTENSION
     Dosage: 7.5 MG/DAY, ORAL; 2.5 MG/DAY, ORAL
     Route: 048
     Dates: start: 20081101
  2. RAMIPRIL [Suspect]
     Indication: HYPERTENSION
     Dosage: 7.5 MG/DAY, ORAL; 2.5 MG/DAY, ORAL
     Route: 048
     Dates: start: 20081101

REACTIONS (5)
  - CARDIOVASCULAR DISORDER [None]
  - CHEST PAIN [None]
  - HYPERTENSION [None]
  - MALAISE [None]
  - WEIGHT DECREASED [None]
